FAERS Safety Report 5411233-X (Version None)
Quarter: 2007Q3

REPORT INFORMATION
  Report Type: 
  Country: None (occurrence: None)
  Receive Date: 20070810
  Receipt Date: 20070801
  Transmission Date: 20080115
  Serious: Yes (Hospitalization)
  Sender: FDA-Public Use
  Company Number: B0482569A

PATIENT
  Age: 72 Year
  Sex: Female
  Weight: 96 kg

DRUGS (2)
  1. LAPATINIB [Suspect]
     Dosage: 1250MG PER DAY
     Route: 048
     Dates: start: 20070609, end: 20070731
  2. CAPECITABINE [Suspect]
     Dosage: 4000MG PER DAY
     Route: 048
     Dates: start: 20070609, end: 20070724

REACTIONS (3)
  - ASTHENIA [None]
  - DIARRHOEA [None]
  - GENERAL PHYSICAL HEALTH DETERIORATION [None]
